FAERS Safety Report 7610381-3 (Version None)
Quarter: 2011Q3

REPORT INFORMATION
  Report Type: 
  Country: None (occurrence: None)
  Receive Date: 20110715
  Receipt Date: 20110712
  Transmission Date: 20111222
  Serious: No
  Sender: FDA-Public Use
  Company Number: US-PFIZER INC-2011109641

PATIENT
  Sex: Female
  Weight: 80 kg

DRUGS (7)
  1. EFFEXOR XR [Suspect]
     Indication: DEPRESSION
     Dosage: 300 MG, 1X/DAY
     Route: 048
     Dates: start: 19960101
  2. EFFEXOR [Suspect]
     Indication: BIPOLAR DISORDER
     Dosage: UNK
     Route: 048
     Dates: start: 19940101, end: 19960101
  3. EFFEXOR XR [Suspect]
     Indication: BIPOLAR DISORDER
  4. EFFEXOR [Suspect]
     Indication: WEIGHT CONTROL
  5. SYNTHROID [Concomitant]
     Indication: HYPERTHYROIDISM
     Dosage: 125 UG, DAILY
     Route: 048
  6. LEVOXYL [Concomitant]
     Indication: THYROID DISORDER
  7. EFFEXOR [Suspect]
     Indication: DEPRESSION
     Dosage: UNK
     Route: 048
     Dates: start: 19950101, end: 19960101

REACTIONS (5)
  - NAUSEA [None]
  - DRUG EFFECT DECREASED [None]
  - WEIGHT DECREASED [None]
  - WEIGHT INCREASED [None]
  - DRY MOUTH [None]
